FAERS Safety Report 21693561 (Version 1)
Quarter: 2022Q4

REPORT INFORMATION
  Report Type: Spontaneous
  Country: US (occurrence: US)
  Receive Date: 20221207
  Receipt Date: 20221207
  Transmission Date: 20230112
  Serious: No
  Sender: FDA-Public Use
  Company Number: US-BAYER-2022A164590

PATIENT
  Age: 8 Year
  Sex: Male
  Weight: 16.327 kg

DRUGS (10)
  1. VITAMINS [Suspect]
     Active Substance: VITAMINS
     Indication: Nutritional supplementation
     Dosage: 1 DF, QD
     Route: 048
     Dates: end: 20221128
  2. MIRALAX [Suspect]
     Active Substance: POLYETHYLENE GLYCOL 3350
     Indication: Constipation
     Dosage: 2 CAPFUL ONCE A DAY
     Route: 048
     Dates: end: 20221128
  3. CHILDREN CLARITIN ALLERGY [Suspect]
     Active Substance: LORATADINE
     Indication: Allergic respiratory symptom
     Dosage: 10 ML, QD
     Route: 048
     Dates: end: 20221127
  4. CHILDREN CLARITIN ALLERGY [Suspect]
     Active Substance: LORATADINE
     Indication: Nasopharyngitis
  5. HYDROCLONAZONE [Concomitant]
  6. MOTEGRITY [Concomitant]
     Active Substance: PRUCALOPRIDE SUCCINATE
  7. CATAPRES [Concomitant]
     Active Substance: CLONIDINE HYDROCHLORIDE
  8. CYPROHEPTADINE [Concomitant]
     Active Substance: CYPROHEPTADINE
  9. SENNA [Concomitant]
     Active Substance: SENNA LEAF\SENNOSIDES\SENNOSIDES A AND B
  10. NEXIUM I.V. [Concomitant]
     Active Substance: ESOMEPRAZOLE SODIUM

REACTIONS (3)
  - Wrong technique in product usage process [None]
  - Product use issue [None]
  - Incorrect dose administered [Unknown]
